FAERS Safety Report 25751987 (Version 1)
Quarter: 2025Q3

REPORT INFORMATION
  Report Type: Spontaneous
  Country: BR (occurrence: BR)
  Receive Date: 20250902
  Receipt Date: 20250902
  Transmission Date: 20251020
  Serious: Yes (Death)
  Sender: BAYER HEALTHCARE PHARMACEUTICALS INC.
  Company Number: BR-BAYER-2025A113865

PATIENT
  Age: 84 Year
  Sex: Female

DRUGS (1)
  1. STIVARGA [Suspect]
     Active Substance: REGORAFENIB MONOHYDRATE
     Indication: Gastrointestinal carcinoma
     Dosage: 80 MG, QD
     Dates: start: 202503, end: 2025

REACTIONS (2)
  - Gastrointestinal carcinoma [Fatal]
  - Product use issue [None]

NARRATIVE: CASE EVENT DATE: 20250301
